FAERS Safety Report 6390468-6 (Version None)
Quarter: 2009Q4

REPORT INFORMATION
  Report Type: 
  Country: None (occurrence: None)
  Receive Date: 20091005
  Receipt Date: 20091005
  Transmission Date: 20100525
  Serious: Yes (Hospitalization)
  Sender: FDA-Public Use
  Company Number: None

PATIENT
  Age: 64 Year
  Sex: Female
  Weight: 53.1 kg

DRUGS (3)
  1. NAPROXEN [Suspect]
     Indication: DEEP VEIN THROMBOSIS
     Dosage: 259 MG BID PO
     Route: 048
     Dates: start: 20090713, end: 20090715
  2. NAPROXEN [Suspect]
     Indication: PAIN
     Dosage: 259 MG BID PO
     Route: 048
     Dates: start: 20090713, end: 20090715
  3. HEPARIN SODIUM 1,000 UNITS IN DEXTROSE 5% [Suspect]
     Dosage: 7.6 ML PER HOUR IV
     Route: 042
     Dates: start: 20090722, end: 20090724

REACTIONS (11)
  - ABDOMINAL PAIN [None]
  - ASCITES [None]
  - COLITIS ISCHAEMIC [None]
  - CONDITION AGGRAVATED [None]
  - CONTRAINDICATION TO MEDICAL TREATMENT [None]
  - DEEP VEIN THROMBOSIS [None]
  - GASTRIC HAEMORRHAGE [None]
  - ILEUS [None]
  - NAUSEA [None]
  - RENAL FAILURE ACUTE [None]
  - VOMITING [None]
